FAERS Safety Report 18766493 (Version 2)
Quarter: 2022Q1

REPORT INFORMATION
  Report Type: Spontaneous
  Country: US (occurrence: None)
  Receive Date: 20210121
  Receipt Date: 20220329
  Transmission Date: 20220423
  Serious: Yes (Other)
  Sender: FDA-Public Use
  Company Number: 2021A008940

PATIENT
  Sex: Female

DRUGS (10)
  1. PRILOSEC [Suspect]
     Active Substance: OMEPRAZOLE MAGNESIUM
     Indication: Gastrooesophageal reflux disease
     Route: 048
     Dates: start: 200501, end: 201101
  2. PRILOSEC [Suspect]
     Active Substance: OMEPRAZOLE MAGNESIUM
     Indication: Gastrooesophageal reflux disease
     Dosage: 40.0MG UNKNOWN
     Route: 048
     Dates: start: 2005, end: 2011
  3. PRILOSEC [Suspect]
     Active Substance: OMEPRAZOLE MAGNESIUM
     Indication: Gastrooesophageal reflux disease
     Dosage: GENERIC40.0MG UNKNOWN
     Route: 065
     Dates: start: 2010
  4. PRILOSEC OTC [Suspect]
     Active Substance: OMEPRAZOLE MAGNESIUM
     Indication: Gastrooesophageal reflux disease
     Route: 048
     Dates: start: 200501, end: 201101
  5. PRILOSEC OTC [Suspect]
     Active Substance: OMEPRAZOLE MAGNESIUM
     Indication: Gastrooesophageal reflux disease
     Dosage: 20.0MG UNKNOWN
     Route: 048
     Dates: start: 2005, end: 2011
  6. AMLODIPINE [Concomitant]
     Active Substance: AMLODIPINE BESYLATE
     Indication: Blood pressure abnormal
  7. LEVOTHYROXINE [Concomitant]
     Active Substance: LEVOTHYROXINE
     Indication: Blood thyroid stimulating hormone abnormal
  8. LISINOPRIL [Concomitant]
     Active Substance: LISINOPRIL
     Indication: Blood pressure abnormal
  9. ACETAMINOPHEN [Concomitant]
     Active Substance: ACETAMINOPHEN
     Indication: Analgesic therapy
  10. VITAMIN D [Concomitant]
     Active Substance: VITAMIN D NOS
     Indication: Product prescribing error

REACTIONS (2)
  - Acute kidney injury [Not Recovered/Not Resolved]
  - Chronic kidney disease [Not Recovered/Not Resolved]
